FAERS Safety Report 4497156-1 (Version None)
Quarter: 2004Q4

REPORT INFORMATION
  Report Type: 
  Country: None (occurrence: None)
  Receive Date: 20041110
  Receipt Date: 20040910
  Transmission Date: 20050328
  Serious: Yes (Other)
  Sender: FDA-Public Use
  Company Number: GB-BRISTOL-MYERS SQUIBB COMPANY-12698106

PATIENT
  Sex: Male

DRUGS (5)
  1. REYATAZ [Suspect]
     Route: 048
     Dates: start: 20040401
  2. RITONAVIR [Concomitant]
  3. ANTIDEPRESSANT [Concomitant]
  4. SLEEPING PILL [Concomitant]
  5. ANTIPSYCHOTIC [Concomitant]

REACTIONS (4)
  - DEPRESSION [None]
  - DISORIENTATION [None]
  - FATIGUE [None]
  - SUICIDAL IDEATION [None]
